FAERS Safety Report 23388556 (Version 1)
Quarter: 2024Q1

REPORT INFORMATION
  Report Type: Spontaneous
  Country: US (occurrence: US)
  Receive Date: 20240110
  Receipt Date: 20240110
  Transmission Date: 20240410
  Serious: No
  Sender: FDA-Public Use
  Company Number: US-ABBVIE-5574472

PATIENT
  Age: 73 Year
  Sex: Female
  Weight: 58.966 kg

DRUGS (1)
  1. HUMIRA [Suspect]
     Active Substance: ADALIMUMAB
     Indication: Crohn^s disease
     Dosage: FORM STRENGTH: 40 MG
     Route: 058

REACTIONS (4)
  - Injection site haemorrhage [Recovered/Resolved]
  - Injection site pain [Recovered/Resolved]
  - Injection site discharge [Not Recovered/Not Resolved]
  - Needle issue [Not Recovered/Not Resolved]

NARRATIVE: CASE EVENT DATE: 20230103
